FAERS Safety Report 7321448-1 (Version None)
Quarter: 2011Q1

REPORT INFORMATION
  Report Type: 
  Country: None (occurrence: None)
  Receive Date: 20110228
  Receipt Date: 20100429
  Transmission Date: 20110831
  Serious: No
  Sender: FDA-Public Use
  Company Number: US-PFIZER INC-2010055097

PATIENT
  Sex: Female
  Weight: 100 kg

DRUGS (4)
  1. EFFEXOR [Concomitant]
     Dosage: 75 MG, UNK
  2. NUVARING [Concomitant]
     Indication: CONTRACEPTION
     Dosage: UNK
  3. ZYRTEC [Concomitant]
     Dosage: 10 MG, UNK
  4. GEODON [Suspect]
     Indication: DEPRESSION
     Dosage: 20 MG, DAILY
     Route: 048
     Dates: start: 20100320

REACTIONS (4)
  - DIARRHOEA [None]
  - CENTRAL NERVOUS SYSTEM STIMULATION [None]
  - EUPHORIC MOOD [None]
  - LOSS OF LIBIDO [None]
